FAERS Safety Report 17429375 (Version 11)
Quarter: 2023Q4

REPORT INFORMATION
  Report Type: Report from Study
  Country: US (occurrence: US)
  Receive Date: 20200218
  Receipt Date: 20231030
  Transmission Date: 20240109
  Serious: Yes (Life-Threatening, Hospitalization)
  Sender: FDA-Public Use
  Company Number: None

PATIENT
  Age: 48 Year
  Sex: Female
  Weight: 101 kg

DRUGS (14)
  1. KISQALI [Suspect]
     Active Substance: RIBOCICLIB
     Indication: HER2 negative breast cancer
     Dosage: 400 MG, QD
     Route: 048
     Dates: start: 20200128, end: 20200206
  2. KISQALI [Suspect]
     Active Substance: RIBOCICLIB
     Dosage: 200 MG, QD
     Route: 048
     Dates: start: 20200212, end: 20200615
  3. KISQALI [Suspect]
     Active Substance: RIBOCICLIB
     Dosage: 200 MG, QD
     Route: 048
     Dates: start: 20200623
  4. ANASTROZOLE [Suspect]
     Active Substance: ANASTROZOLE
     Indication: HER2 negative breast cancer
     Dosage: 1 MG, QD
     Route: 048
     Dates: start: 20200128
  5. GOSERELIN [Suspect]
     Active Substance: GOSERELIN
     Indication: HER2 negative breast cancer
     Dosage: 3.6 MG, Q28 DAYS
     Route: 058
     Dates: start: 20200128
  6. GLUCOPHAGE [Concomitant]
     Active Substance: METFORMIN HYDROCHLORIDE
     Indication: Type 2 diabetes mellitus
     Dosage: 500 MG, BID
     Route: 048
     Dates: start: 20190828
  7. GLUCOPHAGE [Concomitant]
     Active Substance: METFORMIN HYDROCHLORIDE
     Dosage: 1000 MG, BID
     Route: 048
     Dates: start: 20200210
  8. INSULIN GLARGINE [Concomitant]
     Active Substance: INSULIN GLARGINE
     Indication: Type 2 diabetes mellitus
     Dosage: 100 UI/ML, 22 UI, QD
     Route: 058
     Dates: start: 20180123
  9. VITAMIN D [Concomitant]
     Active Substance: VITAMIN D NOS
     Indication: Prophylaxis
     Dosage: 50000 ENZYME UNITS, QW
     Route: 048
     Dates: start: 20191203
  10. ZOLOFT [Concomitant]
     Active Substance: SERTRALINE HYDROCHLORIDE
     Indication: Anxiety
     Dosage: 75 MG, QD
     Route: 048
     Dates: start: 20190822
  11. METFORMIN [Concomitant]
     Active Substance: METFORMIN HYDROCHLORIDE
     Indication: Type 2 diabetes mellitus
     Dosage: 1000 MG, BID
     Route: 048
     Dates: start: 20190828
  12. SERTRALINE [Concomitant]
     Active Substance: SERTRALINE HYDROCHLORIDE
     Indication: Anxiety
     Dosage: 50 MG, QD
     Route: 048
     Dates: start: 20190822
  13. ATIVAN [Concomitant]
     Active Substance: LORAZEPAM
     Indication: Anxiety
     Dosage: 0.5 MG, PRN
     Route: 048
     Dates: start: 20181219
  14. HUMALOG [Concomitant]
     Active Substance: INSULIN LISPRO
     Indication: Type 2 diabetes mellitus
     Dosage: 1-12 UNITS 4 TIMES DAILY
     Route: 058
     Dates: start: 20200617

REACTIONS (4)
  - Breast cellulitis [Recovered/Resolved]
  - Sepsis [Recovered/Resolved]
  - Cellulitis [Recovered/Resolved]
  - Ureterolithiasis [Recovered/Resolved]

NARRATIVE: CASE EVENT DATE: 20200205
